FAERS Safety Report 18035554 (Version 1)
Quarter: 2020Q3

REPORT INFORMATION
  Report Type: Spontaneous
  Country: US (occurrence: US)
  Receive Date: 20200717
  Receipt Date: 20200717
  Transmission Date: 20201103
  Serious: No
  Sender: FDA-Public Use
  Company Number: US-JNJFOC-20200716544

PATIENT
  Sex: Female

DRUGS (1)
  1. TYLENOL [Suspect]
     Active Substance: ACETAMINOPHEN
     Indication: PRODUCT USED FOR UNKNOWN INDICATION
     Route: 065

REACTIONS (10)
  - Hypoaesthesia [Unknown]
  - Fibromyalgia [Unknown]
  - Insomnia [Unknown]
  - Tremor [Unknown]
  - Thyroid disorder [Unknown]
  - Muscle spasms [Unknown]
  - Depression [Unknown]
  - Abdominal rigidity [Unknown]
  - Dizziness [Unknown]
  - Mental status changes [Unknown]
